FAERS Safety Report 4492167-4 (Version None)
Quarter: 2004Q4

REPORT INFORMATION
  Report Type: 
  Country: None (occurrence: None)
  Receive Date: 20041103
  Receipt Date: 20041021
  Transmission Date: 20050328
  Serious: Yes (Hospitalization)
  Sender: FDA-Public Use
  Company Number: PHH02002IT09876

PATIENT
  Age: 54 Year
  Sex: Male

DRUGS (8)
  1. DIGOXIN [Suspect]
     Dates: end: 20040520
  2. NEORAL [Concomitant]
  3. MEDROL [Concomitant]
  4. CELLCEPT [Concomitant]
  5. TRIATEC [Concomitant]
  6. CARDURA [Concomitant]
  7. LASIX [Concomitant]
  8. FISIOTENS [Concomitant]

REACTIONS (6)
  - BRADYCARDIA [None]
  - EPITHELIOMA [None]
  - HYPERCHOLESTEROLAEMIA [None]
  - SEPSIS [None]
  - SINUS BRADYCARDIA [None]
  - SKIN LESION [None]
